FAERS Safety Report 5582838-0 (Version None)
Quarter: 2008Q1

REPORT INFORMATION
  Report Type: 
  Country: None (occurrence: None)
  Receive Date: 20080107
  Receipt Date: 20071227
  Transmission Date: 20080703
  Serious: Yes (Hospitalization)
  Sender: FDA-Public Use
  Company Number: JP-JNJFOC-20071105170

PATIENT
  Sex: Male
  Weight: 42.4 kg

DRUGS (6)
  1. ITRIZOLE [Suspect]
     Indication: MUCOCUTANEOUS CANDIDIASIS
     Route: 048
  2. LEVOTHYROXINE SODIUM [Concomitant]
     Indication: HYPOTHYROIDISM
     Route: 048
  3. FAMOTIDINE [Concomitant]
     Indication: OESOPHAGEAL CANDIDIASIS
     Route: 048
  4. TEPRENONE [Concomitant]
     Indication: OESOPHAGEAL CANDIDIASIS
     Route: 048
  5. SODIUM ALGINATE [Concomitant]
     Indication: OESOPHAGEAL CANDIDIASIS
     Route: 048
  6. ANTIBIOTICS RESISTANT LACTIC ACID BACTERIAE [Concomitant]
     Indication: OESOPHAGEAL CANDIDIASIS
     Route: 048

REACTIONS (1)
  - CONVULSION [None]
